FAERS Safety Report 5066313-8 (Version None)
Quarter: 2006Q3

REPORT INFORMATION
  Report Type: 
  Country: None (occurrence: None)
  Receive Date: 20060728
  Receipt Date: 20060609
  Transmission Date: 20061208
  Serious: Yes (Other)
  Sender: FDA-Public Use
  Company Number: DSA_28242_2006

PATIENT
  Age: 74 Year
  Sex: Male

DRUGS (10)
  1. CARDIZEM [Suspect]
     Dosage: DF
  2. LIPITOR [Suspect]
     Indication: BLOOD CHOLESTEROL
     Dosage: 60 MG Q DAY
  3. LIPITOR [Suspect]
     Indication: BLOOD CHOLESTEROL
     Dosage: 20 MG Q DAY
  4. LIPITOR [Suspect]
     Indication: BLOOD CHOLESTEROL
     Dosage: 30 MG Q DAY
  5. LIPITOR [Suspect]
     Indication: BLOOD CHOLESTEROL
     Dosage: 40 MG Q DAY
  6. FLOMAX [Concomitant]
  7. NEXIUM [Concomitant]
  8. HYZAAR [Concomitant]
  9. PROSCAR [Concomitant]
  10. AMOXICILLIN [Concomitant]

REACTIONS (10)
  - ANEURYSM [None]
  - ARTHRITIS [None]
  - BLOOD ALKALINE PHOSPHATASE INCREASED [None]
  - BLOOD POTASSIUM DECREASED [None]
  - HEPATIC ENZYME INCREASED [None]
  - JOINT EFFUSION [None]
  - KNEE ARTHROPLASTY [None]
  - OEDEMA PERIPHERAL [None]
  - POST PROCEDURAL COMPLICATION [None]
  - PROSTATE CANCER [None]
